FAERS Safety Report 7214157-0 (Version None)
Quarter: 2010Q4

REPORT INFORMATION
  Report Type: 
  Country: None (occurrence: None)
  Receive Date: 20101126
  Receipt Date: 20100208
  Transmission Date: 20110411
  Serious: Yes (Hospitalization)
  Sender: FDA-Public Use
  Company Number: WAES 1002USA01434

PATIENT
  Sex: Female

DRUGS (3)
  1. FOSAMAX [Suspect]
     Dosage: PO
     Route: 048
     Dates: start: 19930101
  2. PRAVACHOL [Concomitant]
  3. RANITIDINE [Concomitant]

REACTIONS (1)
  - FEMUR FRACTURE [None]
